FAERS Safety Report 14829034 (Version 1)
Quarter: 2018Q2

REPORT INFORMATION
  Report Type: Spontaneous
  Country: ES (occurrence: ES)
  Receive Date: 20180430
  Receipt Date: 20180430
  Transmission Date: 20180711
  Serious: Yes (Other)
  Sender: FDA-Public Use
  Company Number: ES-SA-2018SA094483

PATIENT
  Age: 38 Year
  Sex: Female

DRUGS (8)
  1. THYMOGLOBULIN [Suspect]
     Active Substance: LAPINE T-LYMPHOCYTE IMMUNE GLOBULIN
     Indication: PROPHYLAXIS AGAINST TRANSPLANT REJECTION
     Dosage: INDUCTION THERAPY
     Route: 065
  2. VALGANCICLOVIR HYDROCHLORIDE. [Suspect]
     Active Substance: VALGANCICLOVIR HYDROCHLORIDE
     Indication: VIRAL INFECTION
     Route: 065
  3. MYCOPHENOLATE MOFETIL. [Suspect]
     Active Substance: MYCOPHENOLATE MOFETIL
     Indication: PROPHYLAXIS AGAINST TRANSPLANT REJECTION
     Route: 065
  4. GANCICLOVIR SODIUM. [Suspect]
     Active Substance: GANCICLOVIR SODIUM
     Indication: VIRAL INFECTION
     Route: 065
  5. GANCICLOVIR SODIUM. [Suspect]
     Active Substance: GANCICLOVIR SODIUM
     Indication: VIRAL INFECTION
     Route: 065
  6. LEFLUNOMIDE. [Suspect]
     Active Substance: LEFLUNOMIDE
     Indication: VIRAL INFECTION
     Route: 065
  7. VALGANCICLOVIR HYDROCHLORIDE. [Suspect]
     Active Substance: VALGANCICLOVIR HYDROCHLORIDE
     Indication: VIRAL INFECTION
     Route: 065
  8. TACROLIMUS. [Suspect]
     Active Substance: TACROLIMUS
     Indication: PROPHYLAXIS AGAINST TRANSPLANT REJECTION
     Route: 065

REACTIONS (8)
  - Sepsis [Recovered/Resolved]
  - Pancytopenia [Unknown]
  - Thrombocytopenia [Recovered/Resolved]
  - Drug ineffective [Unknown]
  - Drug resistance [Unknown]
  - Cytomegalovirus infection [Recovered/Resolved]
  - Neutropenia [Unknown]
  - Off label use [Unknown]
